FAERS Safety Report 8904225 (Version 1)
Quarter: 2012Q4

REPORT INFORMATION
  Report Type: 
  Country: US (occurrence: US)
  Receive Date: 20121112
  Receipt Date: 20121112
  Transmission Date: 20130627
  Serious: Yes (Other)
  Sender: FDA-Public Use
  Company Number: US-VERTEX PHARMACEUTICAL INC.-2012-024365

PATIENT
  Sex: Male

DRUGS (2)
  1. VX-770 [Suspect]
     Indication: CYSTIC FIBROSIS
     Dosage: 150 mg, bid
     Route: 048
     Dates: start: 20120214, end: 201208
  2. VX-770 [Suspect]
     Dosage: 150 mg, qd
     Route: 048
     Dates: start: 201208

REACTIONS (2)
  - Non-Hodgkin^s lymphoma [Unknown]
  - Nasal congestion [Unknown]
